FAERS Safety Report 4927787-3 (Version None)
Quarter: 2006Q1

REPORT INFORMATION
  Report Type: 
  Country: None (occurrence: None)
  Receive Date: 20060228
  Receipt Date: 20050224
  Transmission Date: 20060701
  Serious: No
  Sender: FDA-Public Use
  Company Number: 114

PATIENT
  Age: 70 Year
  Sex: Male

DRUGS (2)
  1. MELPHALAN [Suspect]
     Indication: DRUG USE FOR UNKNOWN INDICATION
     Route: 065
  2. THALIDOMIDE [Suspect]
     Indication: MULTIPLE MYELOMA
     Dosage: 50MG UNKNOWN
     Route: 048
     Dates: start: 20041101, end: 20041115

REACTIONS (1)
  - HYPOAESTHESIA [None]
